FAERS Safety Report 24734368 (Version 1)
Quarter: 2024Q4

REPORT INFORMATION
  Report Type: Spontaneous
  Country: CN (occurrence: CN)
  Receive Date: 20241214
  Receipt Date: 20241214
  Transmission Date: 20250115
  Serious: No
  Sender: ALKEM
  Company Number: CN-ALKEM LABORATORIES LIMITED-CN-ALKEM-2024-17938

PATIENT
  Age: 13 Year
  Sex: Male

DRUGS (5)
  1. MYCOPHENOLATE MOFETIL [Suspect]
     Active Substance: MYCOPHENOLATE MOFETIL
     Indication: Henoch-Schonlein purpura nephritis
     Dosage: UNK
     Route: 065
  2. TACROLIMUS [Suspect]
     Active Substance: TACROLIMUS
     Indication: Henoch-Schonlein purpura nephritis
     Dosage: UNK
     Route: 065
  3. CYCLOPHOSPHAMIDE [Suspect]
     Active Substance: CYCLOPHOSPHAMIDE
     Indication: Henoch-Schonlein purpura nephritis
     Dosage: UNK
     Route: 065
  4. PREDNISONE [Suspect]
     Active Substance: PREDNISONE
     Indication: Henoch-Schonlein purpura nephritis
     Dosage: 40 MG/DAY (PRE-TREATMENT)
     Route: 065
  5. PREDNISONE [Suspect]
     Active Substance: PREDNISONE
     Dosage: 2.5 MG/DAY (POST-TREATMENT)
     Route: 065

REACTIONS (2)
  - Therapy non-responder [Unknown]
  - Therapy partial responder [Unknown]
